FAERS Safety Report 21738566 (Version 2)
Quarter: 2023Q1

REPORT INFORMATION
  Report Type: Report from Study
  Country: US (occurrence: US)
  Receive Date: 20221216
  Receipt Date: 20230131
  Transmission Date: 20230418
  Serious: No
  Sender: FDA-Public Use
  Company Number: US-ABBVIE-4239149

PATIENT
  Sex: Male

DRUGS (1)
  1. IMBRUVICA [Suspect]
     Active Substance: IBRUTINIB
     Indication: Mantle cell lymphoma
     Route: 048
     Dates: start: 20200701

REACTIONS (4)
  - Onychomadesis [Recovering/Resolving]
  - Hypersensitivity [Unknown]
  - Skin ulcer [Recovering/Resolving]
  - Nail infection [Recovering/Resolving]
